FAERS Safety Report 11691708 (Version 1)
Quarter: 2015Q4

REPORT INFORMATION
  Report Type: Spontaneous
  Country: GB (occurrence: GB)
  Receive Date: 20151102
  Receipt Date: 20151102
  Transmission Date: 20160304
  Serious: Yes (Other)
  Sender: FDA-Public Use
  Company Number: GB-009507513-1511GBR000117

PATIENT
  Age: 76 Year
  Sex: Female
  Weight: 114 kg

DRUGS (14)
  1. ACETAMINOPHEN AND CODEINE [Concomitant]
     Active Substance: ACETAMINOPHEN\CODEINE PHOSPHATE
     Dosage: 1-2 TO BE TAKEN FOUR TIMES DAILY
     Dates: start: 20141202
  2. EUMOVATE [Concomitant]
     Active Substance: CLOBETASONE BUTYRATE
     Dosage: 1 DF, APPLY THINLY 1-2 TIMES A DAY
     Dates: start: 20150721, end: 20150818
  3. HYDROCORTISONE. [Concomitant]
     Active Substance: HYDROCORTISONE
     Dosage: 1 DF, BID
     Dates: start: 20150826, end: 20150923
  4. ACETAMINOPHEN. [Concomitant]
     Active Substance: ACETAMINOPHEN
     Dosage: ONE OR TWO.
     Dates: start: 20141202
  5. DIAZEPAM. [Concomitant]
     Active Substance: DIAZEPAM
     Dosage: 1-2 TO BE TAKEN TWICE DAILY
     Route: 048
     Dates: start: 20150909, end: 20150923
  6. DOXYCYCLINE. [Concomitant]
     Active Substance: DOXYCYCLINE
     Dosage: 2 IMMEDIATELY ON 1ST DAY THEN 1 EVERY DAY AFTER
     Dates: start: 20150821, end: 20150828
  7. METFORMIN [Concomitant]
     Active Substance: METFORMIN HYDROCHLORIDE
     Dosage: 2 DF, QD, WITH EVENING MEAL.
     Dates: start: 20141202
  8. SITAGLIPTIN PHOSPHATE [Suspect]
     Active Substance: SITAGLIPTIN PHOSPHATE
     Route: 048
     Dates: start: 20151006
  9. E45 CREAM [Concomitant]
     Active Substance: LANOLIN\LIGHT MINERAL OIL\PARAFFIN
     Dosage: UNK UNK, PRN
     Dates: start: 20150814, end: 20150911
  10. SALAMOL [Concomitant]
     Active Substance: ALBUTEROL
     Dosage: 2 DF, PRN
     Route: 055
     Dates: start: 20141202
  11. GLICLAZIDE [Concomitant]
     Active Substance: GLICLAZIDE
     Dosage: 1 DF, BID, WITH FOOD
     Dates: start: 20141202
  12. QUININE [Concomitant]
     Active Substance: QUININE
     Indication: MUSCLE SPASMS
     Dosage: 1 DF, AT NIGHT TO HELP PREVENT CRAMP
     Dates: start: 20141202
  13. TIOTROPIUM BROMIDE [Concomitant]
     Active Substance: TIOTROPIUM BROMIDE
     Dosage: 1 DF, QD
     Route: 055
     Dates: start: 20141202
  14. SERETIDE [Concomitant]
     Active Substance: FLUTICASONE FUROATE\SALMETEROL XINAFOATE
     Dosage: 1 DF, BID
     Route: 055
     Dates: start: 20141202

REACTIONS (3)
  - Malaise [Unknown]
  - Peripheral swelling [Recovered/Resolved]
  - Abdominal pain upper [Unknown]

NARRATIVE: CASE EVENT DATE: 20151019
